FAERS Safety Report 8797361 (Version 2)
Quarter: 2019Q4

REPORT INFORMATION
  Report Type: Spontaneous
  Country: US (occurrence: US)
  Receive Date: 20120920
  Receipt Date: 20191028
  Transmission Date: 20200122
  Serious: Yes (Other)
  Sender: FDA-Public Use
  Company Number: US-PFIZER INC-2012229424

PATIENT
  Age: 2 Year
  Sex: Female
  Weight: 9.98 kg

DRUGS (2)
  1. GENOTROPIN [Suspect]
     Active Substance: SOMATROPIN
     Indication: TURNER^S SYNDROME
     Dosage: 0.5 MG, 1X/DAY
     Route: 058
     Dates: start: 20120814
  2. GENOTROPIN [Suspect]
     Active Substance: SOMATROPIN
     Dosage: 0.5 MG, DAILY
     Dates: start: 20120815

REACTIONS (4)
  - Nephrolithiasis [Unknown]
  - Sleep apnoea syndrome [Unknown]
  - Rhinorrhoea [Unknown]
  - Nasopharyngitis [Unknown]

NARRATIVE: CASE EVENT DATE: 20120914
